FAERS Safety Report 7361939-0 (Version None)
Quarter: 2011Q1

REPORT INFORMATION
  Report Type: 
  Country: None (occurrence: None)
  Receive Date: 20110318
  Receipt Date: 20110307
  Transmission Date: 20110831
  Serious: Yes (Death, Hospitalization)
  Sender: FDA-Public Use
  Company Number: CA-PFIZER INC-2011055542

PATIENT
  Sex: Female

DRUGS (5)
  1. OVRAL [Suspect]
     Indication: VAGINAL HAEMORRHAGE
     Dosage: UNK
     Dates: start: 20080906, end: 20080906
  2. OVRAL [Suspect]
     Indication: OFF LABEL USE
     Dosage: UNK
     Dates: start: 20080904, end: 20080905
  3. OVRAL [Suspect]
     Dosage: UNK
     Dates: start: 20080901, end: 20080903
  4. PROVERA [Suspect]
     Indication: BLEEDING ANOVULATORY
     Dosage: 10 MG, 1X/DAY
     Dates: start: 20080701, end: 20080801
  5. OVRAL [Suspect]
     Dosage: UNK
     Dates: start: 20080828, end: 20080831

REACTIONS (1)
  - THROMBOTIC STROKE [None]
